FAERS Safety Report 18588017 (Version 15)
Quarter: 2021Q3

REPORT INFORMATION
  Report Type: Report from Study
  Country: FR (occurrence: FR)
  Receive Date: 20201207
  Receipt Date: 20210907
  Transmission Date: 20211014
  Serious: Yes (Hospitalization)
  Sender: FDA-Public Use
  Company Number: FR-EISAI MEDICAL RESEARCH-EC-2020-084779

PATIENT
  Age: 64 Year
  Sex: Male
  Weight: 54 kg

DRUGS (12)
  1. SKENAN [Concomitant]
     Active Substance: MORPHINE SULFATE
     Dates: start: 20201013
  2. LENVATINIB [Suspect]
     Active Substance: LENVATINIB
     Dosage: STARTING DOSE 14 MG, FLUCTUATED DOSAGE
     Route: 048
     Dates: start: 20201204
  3. LENVATINIB [Suspect]
     Active Substance: LENVATINIB
     Indication: MALIGNANT MELANOMA
     Route: 048
     Dates: start: 20201109, end: 20201129
  4. QUAVONLIMAB. [Suspect]
     Active Substance: QUAVONLIMAB
     Indication: MALIGNANT MELANOMA
     Route: 042
     Dates: start: 20201109, end: 20201109
  5. QUAVONLIMAB. [Suspect]
     Active Substance: QUAVONLIMAB
     Route: 042
     Dates: start: 20201221
  6. ACTISKENAN [Concomitant]
     Active Substance: MORPHINE SULFATE
     Dates: start: 20201013
  7. DOLIPRANE [Concomitant]
     Active Substance: ACETAMINOPHEN
     Dates: start: 20201013
  8. NEURONTIN [Concomitant]
     Active Substance: GABAPENTIN
     Dates: start: 20201013
  9. PEMBROLIZUMAB. [Suspect]
     Active Substance: PEMBROLIZUMAB
     Route: 041
     Dates: start: 20201221
  10. DUPHALAC [Concomitant]
     Active Substance: LACTULOSE
     Dates: start: 20201013
  11. LANSOYL [Concomitant]
     Active Substance: MINERAL OIL
     Dates: start: 20201013
  12. PEMBROLIZUMAB. [Suspect]
     Active Substance: PEMBROLIZUMAB
     Indication: MALIGNANT MELANOMA
     Route: 041
     Dates: start: 20201109, end: 20201109

REACTIONS (1)
  - Weight decreased [Not Recovered/Not Resolved]

NARRATIVE: CASE EVENT DATE: 20201130
